FAERS Safety Report 5907774-9 (Version None)
Quarter: 2008Q3

REPORT INFORMATION
  Report Type: 
  Country: None (occurrence: None)
  Receive Date: 20080929
  Receipt Date: 20080918
  Transmission Date: 20090109
  Serious: Yes (Death, Other)
  Sender: FDA-Public Use
  Company Number: MC200800454

PATIENT
  Age: 81 Year
  Sex: Female
  Weight: 45 kg

DRUGS (12)
  1. ANGIOMAX [Suspect]
     Indication: PERCUTANEOUS CORONARY INTERVENTION
     Dosage: 0.1 MG/KG, BOLUS, INTRAVENOUS, 0.25 MG/KG, HR, INTRAVENOUS, 0.5 MG/KG, BOLUS, INTRAVENOUS, 1.75 MG/K
     Route: 042
  2. AMLODIPINE (AMLODIPINE) [Concomitant]
  3. INDAPAMIDE [Concomitant]
  4. ATORVASTATIN CALCIUM [Concomitant]
  5. ACEBUTOLOL [Concomitant]
  6. CLOPIDOGREL [Concomitant]
  7. PERINDOPRIL ERBUMINE [Concomitant]
  8. OMEPRAZOLE [Concomitant]
  9. ASPIRIN [Concomitant]
  10. FONDAPARINUX (FONDAPARINUX) [Concomitant]
  11. NICORANDIL (NICORANDIL) [Concomitant]
  12. ENOXAPARIN SODIUM [Concomitant]

REACTIONS (15)
  - ABDOMINAL PAIN [None]
  - AGITATION [None]
  - BLOOD PRESSURE DECREASED [None]
  - CARDIOVASCULAR DISORDER [None]
  - GENERAL PHYSICAL HEALTH DETERIORATION [None]
  - HAEMODYNAMIC INSTABILITY [None]
  - HAEMOGLOBIN DECREASED [None]
  - MULTI-ORGAN FAILURE [None]
  - NAUSEA [None]
  - OVERDOSE [None]
  - PROCEDURAL COMPLICATION [None]
  - RETROPERITONEAL HAEMORRHAGE [None]
  - TACHYCARDIA [None]
  - VESSEL PUNCTURE SITE HAEMATOMA [None]
  - VOMITING [None]
